FAERS Safety Report 11278881 (Version 3)
Quarter: 2018Q3

REPORT INFORMATION
  Report Type: Report from Study
  Country: US (occurrence: US)
  Receive Date: 20150717
  Receipt Date: 20180927
  Transmission Date: 20181010
  Serious: Yes (Other)
  Sender: FDA-Public Use
  Company Number: PHEH2015US008922

PATIENT
  Sex: Female
  Weight: 77.55 kg

DRUGS (1)
  1. GILENYA [Suspect]
     Active Substance: FINGOLIMOD HYDROCHLORIDE
     Indication: MULTIPLE SCLEROSIS
     Dosage: 0.5 MG, QD
     Route: 048
     Dates: start: 20150420, end: 20150628

REACTIONS (5)
  - Eye disorder [Recovering/Resolving]
  - Fatigue [Unknown]
  - Back disorder [Unknown]
  - Multiple sclerosis relapse [Recovering/Resolving]
  - Condition aggravated [Unknown]
